FAERS Safety Report 4628068-8 (Version None)
Quarter: 2005Q2

REPORT INFORMATION
  Report Type: 
  Country: None (occurrence: None)
  Receive Date: 20050406
  Receipt Date: 20050322
  Transmission Date: 20051028
  Serious: Yes (Death, Hospitalization)
  Sender: FDA-Public Use
  Company Number: US-GLAXOSMITHKLINE-A0550811A

PATIENT
  Age: 62 Year
  Sex: Female
  Weight: 57 kg

DRUGS (1)
  1. STANBACK HEADACHE POWDER [Suspect]
     Indication: HEADACHE
     Route: 048

REACTIONS (2)
  - HEADACHE [None]
  - RUPTURED CEREBRAL ANEURYSM [None]
